FAERS Safety Report 7693420-3 (Version None)
Quarter: 2011Q3

REPORT INFORMATION
  Report Type: 
  Country: None (occurrence: None)
  Receive Date: 20110815
  Receipt Date: 20110809
  Transmission Date: 20111222
  Serious: Yes (Death, Other)
  Sender: FDA-Public Use
  Company Number: 2011SP028964

PATIENT
  Age: 38 Year
  Sex: Male

DRUGS (11)
  1. FLUNITRAZEPAM (FLUNITRAZEPAM) [Suspect]
     Indication: PRODUCT USED FOR UNKNOWN INDICATION
     Dosage: 4 MG;QD;PO
     Route: 048
     Dates: start: 20090421, end: 20110616
  2. LEVOMEPROMAZINE (LEVOMEPROMAZINE) [Suspect]
     Indication: PRODUCT USED FOR UNKNOWN INDICATION
     Dosage: 25 MG;QD;PO
     Route: 048
     Dates: start: 20090421, end: 20110616
  3. MIRTAZAPINE [Suspect]
     Indication: DEPRESSION
     Dosage: 15 MG;QD;PO, 30 MG;QD;PO, 45 MG;QD;PO
     Route: 048
     Dates: start: 20101214, end: 20110516
  4. MIRTAZAPINE [Suspect]
     Indication: SLEEP DISORDER
     Dosage: 15 MG;QD;PO, 30 MG;QD;PO, 45 MG;QD;PO
     Route: 048
     Dates: start: 20101214, end: 20110516
  5. MIRTAZAPINE [Suspect]
     Indication: DEPRESSION
     Dosage: 15 MG;QD;PO, 30 MG;QD;PO, 45 MG;QD;PO
     Route: 048
     Dates: start: 20101130, end: 20101213
  6. MIRTAZAPINE [Suspect]
     Indication: SLEEP DISORDER
     Dosage: 15 MG;QD;PO, 30 MG;QD;PO, 45 MG;QD;PO
     Route: 048
     Dates: start: 20101130, end: 20101213
  7. MIRTAZAPINE [Suspect]
     Indication: DEPRESSION
     Dosage: 15 MG;QD;PO, 30 MG;QD;PO, 45 MG;QD;PO
     Route: 048
     Dates: start: 20110517, end: 20110616
  8. MIRTAZAPINE [Suspect]
     Indication: SLEEP DISORDER
     Dosage: 15 MG;QD;PO, 30 MG;QD;PO, 45 MG;QD;PO
     Route: 048
     Dates: start: 20110517, end: 20110616
  9. RAMOSETRON HYDROCHLORIDE [Concomitant]
  10. AMOBAN (ZOPICLONE) [Suspect]
     Indication: PRODUCT USED FOR UNKNOWN INDICATION
     Dosage: 10 MG;QD;PO
     Route: 048
     Dates: start: 20090421, end: 20110616
  11. CHLORPROMAZINE HYDROCHLORIDE [Suspect]
     Indication: PRODUCT USED FOR UNKNOWN INDICATION
     Dosage: 1 DF;QD;PO
     Route: 048
     Dates: start: 20090421, end: 20110616

REACTIONS (6)
  - MULTIPLE DRUG OVERDOSE INTENTIONAL [None]
  - TOXICITY TO VARIOUS AGENTS [None]
  - COMPLETED SUICIDE [None]
  - INTRACARDIAC THROMBUS [None]
  - DRUG INTERACTION [None]
  - HAEMATEMESIS [None]
